FAERS Safety Report 10420353 (Version 1)
Quarter: 2014Q3

REPORT INFORMATION
  Report Type: Spontaneous
  Country: US (occurrence: None)
  Receive Date: 20140701
  Receipt Date: 20140701
  Transmission Date: 20150326
  Serious: No
  Sender: FDA-Public Use
  Company Number: 1000066956

PATIENT
  Sex: Male

DRUGS (5)
  1. NEXIUM [Concomitant]
     Active Substance: ESOMEPRAZOLE MAGNESIUM
  2. MIRAPEX [Concomitant]
     Active Substance: PRAMIPEXOLE DIHYDROCHLORIDE
  3. DULCOLAX (BISCODYL) [Concomitant]
  4. BACLOFEN (BACLOFEN) [Concomitant]
     Active Substance: BACLOFEN
  5. LINZESS [Suspect]
     Active Substance: LINACLOTIDE

REACTIONS (1)
  - Diarrhoea [None]
